FAERS Safety Report 8599152-1 (Version None)
Quarter: 2012Q3

REPORT INFORMATION
  Report Type: 
  Country: None (occurrence: None)
  Receive Date: 20120816
  Receipt Date: 20120808
  Transmission Date: 20120928
  Serious: Yes (Hospitalization, Other)
  Sender: FDA-Public Use
  Company Number: US-ABBOTT-12P-163-0966234-00

PATIENT
  Sex: Female

DRUGS (1)
  1. HUMIRA [Suspect]
     Indication: CROHN'S DISEASE
     Dates: start: 20070101

REACTIONS (6)
  - DIARRHOEA [None]
  - ANAL SPHINCTER ATONY [None]
  - INTESTINAL OBSTRUCTION [None]
  - DEHYDRATION [None]
  - FAECAL INCONTINENCE [None]
  - ABDOMINAL PAIN [None]
